FAERS Safety Report 7410110-2 (Version None)
Quarter: 2011Q2

REPORT INFORMATION
  Report Type: 
  Country: None (occurrence: None)
  Receive Date: 20110412
  Receipt Date: 20110330
  Transmission Date: 20111010
  Serious: Yes (Other)
  Sender: FDA-Public Use
  Company Number: JP-ROCHE-763246

PATIENT
  Sex: Female

DRUGS (28)
  1. CRESTOR [Concomitant]
     Dosage: FORM: PERORAL AGENT.
     Route: 048
     Dates: end: 20090805
  2. LASIX [Concomitant]
     Dosage: FORM: PERORAL AGENT.
     Route: 048
     Dates: start: 20091209, end: 20100608
  3. TOCILIZUMAB [Suspect]
     Indication: RHEUMATOID ARTHRITIS
     Route: 041
     Dates: start: 20090609, end: 20090609
  4. TOCILIZUMAB [Suspect]
     Route: 041
     Dates: start: 20090804, end: 20090804
  5. TOCILIZUMAB [Suspect]
     Route: 041
     Dates: start: 20091027, end: 20091027
  6. REBAMIPIDE [Concomitant]
     Route: 048
     Dates: start: 20091209, end: 20100608
  7. TOCILIZUMAB [Suspect]
     Route: 041
     Dates: start: 20091222, end: 20091222
  8. TOCILIZUMAB [Suspect]
     Route: 041
     Dates: start: 20100202, end: 20100202
  9. MINOCYCLINE HYDROCHLORIDE [Concomitant]
     Dosage: FORM: PERORAL AGENT. DRUG REPORTED: MINOPHEN (MINOCYCLINE HYDROCHLORIDE)
     Route: 048
     Dates: start: 20091209, end: 20100608
  10. MUCOSTA [Concomitant]
     Dosage: FORM: PERORAL AGENT
     Route: 048
     Dates: start: 20091209, end: 20100608
  11. TOCILIZUMAB [Suspect]
     Route: 041
     Dates: start: 20090707, end: 20090707
  12. TOCILIZUMAB [Suspect]
     Route: 041
     Dates: start: 20091124, end: 20091124
  13. TOCILIZUMAB [Suspect]
     Route: 041
     Dates: start: 20100316, end: 20100316
  14. TOCILIZUMAB [Suspect]
     Route: 041
     Dates: start: 20100427, end: 20100427
  15. PREDNISOLONE [Concomitant]
     Dosage: FORM: PERORAL AGENT
     Route: 048
     Dates: start: 20091209, end: 20100608
  16. METOLATE [Concomitant]
     Dosage: FORM: PERORAL AGENT
     Route: 048
     Dates: end: 20090601
  17. SIMVASTATIN [Concomitant]
     Dosage: FORM: PERORAL AGENT.
     Route: 048
     Dates: start: 20091029, end: 20100608
  18. TOCILIZUMAB [Suspect]
     Route: 041
     Dates: start: 20090929, end: 20090929
  19. TOCILIZUMAB [Suspect]
     Route: 041
     Dates: start: 20100525, end: 20100525
  20. AZULFIDINE [Concomitant]
     Dosage: FORM: PERORAL AGENT
     Route: 048
     Dates: end: 20090601
  21. DIPYRIDAMOLE [Concomitant]
     Dosage: DRUG REPORTED: PERCYSTAN (DIPYRIDAMOLE).  FORM: PERORAL AGENT.
     Route: 048
     Dates: start: 20091209, end: 20100608
  22. ACTONEL [Concomitant]
     Route: 048
     Dates: start: 20091028
  23. TOCILIZUMAB [Suspect]
     Route: 041
     Dates: start: 20090901, end: 20090901
  24. AMLODIN [Concomitant]
     Dosage: DRUG REPORTED: AMLODIN OD.
     Route: 048
     Dates: start: 20091209, end: 20100608
  25. LANSOPRAZOLE [Concomitant]
     Dosage: DRUG REPORTED: TAPIZOL (LANSOPRAZOLE). FORM: PERORAL AGENT
     Route: 048
     Dates: start: 20091209, end: 20100628
  26. CRESTOR [Concomitant]
     Route: 048
     Dates: start: 20090806, end: 20091028
  27. KREMEZIN [Concomitant]
     Dosage: FORM: PERORAL AGENT.
     Route: 048
  28. URIC [Concomitant]
     Dosage: FORM: PERORAL AGENT.
     Route: 048
     Dates: start: 20090805

REACTIONS (1)
  - RENAL IMPAIRMENT [None]
